FAERS Safety Report 8775887 (Version 1)
Quarter: 2012Q4

REPORT INFORMATION
  Report Type: Report from Study
  Country: DE (occurrence: SE)
  Receive Date: 20120910
  Receipt Date: 20120910
  Transmission Date: 20130627
  Serious: Yes (Hospitalization)
  Sender: FDA-Public Use
  Company Number: SE-BRISTOL-MYERS SQUIBB COMPANY-16931834

PATIENT

DRUGS (4)
  1. CETUXIMAB [Suspect]
     Indication: HEAD AND NECK CANCER
  2. CISPLATIN [Suspect]
     Indication: HEAD AND NECK CANCER
  3. DOCETAXEL [Suspect]
     Indication: HEAD AND NECK CANCER
  4. 5-FLUOROURACIL [Suspect]
     Indication: HEAD AND NECK CANCER

REACTIONS (1)
  - Dysphagia [Recovered/Resolved]
